FAERS Safety Report 7090415-8 (Version None)
Quarter: 2010Q4

REPORT INFORMATION
  Report Type: 
  Country: None (occurrence: None)
  Receive Date: 20101109
  Receipt Date: 20100525
  Transmission Date: 20110411
  Serious: Yes (Hospitalization, Other)
  Sender: FDA-Public Use
  Company Number: US-BAYER-200941141NA

PATIENT
  Age: 36 Year
  Sex: Female
  Weight: 68 kg

DRUGS (10)
  1. YASMIN [Suspect]
     Indication: CONTRACEPTION
     Dates: start: 20021015, end: 20080305
  2. ORTHO-NOVUM [Concomitant]
  3. METRONIDAZOLE [Concomitant]
     Dates: start: 20060307
  4. TYLENOL [Concomitant]
     Dates: start: 20000101
  5. ONE A DAY [Concomitant]
     Dates: start: 20000101
  6. LEXAPRO [Concomitant]
     Dosage: PATIENT TOOK ON AND OFF FOR 6 MONTHS IN 2006.
     Dates: start: 20060307, end: 20070203
  7. CVS STOOL SOFTENER [Concomitant]
     Dates: start: 20030412
  8. PRECARE [Concomitant]
     Dates: start: 20030219, end: 20031216
  9. CALNATE [Concomitant]
     Dates: start: 20040316, end: 20041215
  10. PREVACID [Concomitant]

REACTIONS (7)
  - ABDOMINAL PAIN [None]
  - ABDOMINAL PAIN UPPER [None]
  - BACK PAIN [None]
  - BILIARY COLIC [None]
  - BILIARY DYSKINESIA [None]
  - NAUSEA [None]
  - VOMITING [None]
